FAERS Safety Report 8318437 (Version 2)
Quarter: 2012Q4

REPORT INFORMATION
  Report Type: 
  Country: US (occurrence: US)
  Receive Date: 20120103
  Receipt Date: 20121022
  Transmission Date: 20130627
  Serious: Yes (Hospitalization)
  Sender: FDA-Public Use
  Company Number: US-US-EMD SERONO, INC.-7103726

PATIENT
  Sex: Female

DRUGS (2)
  1. REBIF [Suspect]
     Indication: MULTIPLE SCLEROSIS
     Route: 058
     Dates: start: 201110, end: 201204
  2. PANTOPRAZOLE [Concomitant]

REACTIONS (2)
  - Gastrointestinal disorder [Recovering/Resolving]
  - Oesophageal disorder [Unknown]
